FAERS Safety Report 8247150-X (Version None)
Quarter: 2012Q1

REPORT INFORMATION
  Report Type: 
  Country: None (occurrence: None)
  Receive Date: 20120330
  Receipt Date: 20120322
  Transmission Date: 20120608
  Serious: Yes (Other)
  Sender: FDA-Public Use
  Company Number: AT-JNJFOC-20120311453

PATIENT
  Age: 27 Year
  Sex: Female

DRUGS (3)
  1. XEPLION [Suspect]
     Indication: PRODUCT USED FOR UNKNOWN INDICATION
     Route: 030
  2. XEPLION [Suspect]
     Route: 030
  3. XEPLION [Suspect]
     Route: 030
     Dates: start: 20111101

REACTIONS (1)
  - HALLUCINATION [None]
